FAERS Safety Report 9528765 (Version 2)
Quarter: 2013Q3

REPORT INFORMATION
  Report Type: Spontaneous
  Country: US (occurrence: US)
  Receive Date: 20130917
  Receipt Date: 20130917
  Transmission Date: 20140515
  Serious: No
  Sender: FDA-Public Use
  Company Number: US-BANPHARM-20131347

PATIENT
  Age: 68 Year
  Sex: Female
  Weight: 61.24 kg

DRUGS (5)
  1. ZYRTEC LIQUID GELS 10 MG [Suspect]
     Indication: SEASONAL ALLERGY
     Dosage: 1 DF, QD,
     Route: 048
     Dates: start: 20130505
  2. CENTRUM SILVER MULTI VITAMIN [Concomitant]
     Dosage: 1 DF, QD,
  3. CRESTOR [Concomitant]
     Indication: BLOOD CHOLESTEROL
     Dosage: 5 MG, 1 DF, QD,
  4. LEVOTHYROXINE [Concomitant]
     Indication: THYROID DISORDER
     Dosage: 100 MCG, 1 DF, QD,
  5. INSULIN [Concomitant]
     Indication: DIABETES MELLITUS
     Dosage: BASAL AMT PER DAY,

REACTIONS (1)
  - Blood glucose increased [Recovered/Resolved]
